FAERS Safety Report 19167063 (Version 3)
Quarter: 2022Q3

REPORT INFORMATION
  Report Type: Spontaneous
  Country: CH (occurrence: None)
  Receive Date: 20210421
  Receipt Date: 20220818
  Transmission Date: 20221026
  Serious: Yes (Other)
  Sender: FDA-Public Use
  Company Number: 2021A332521

PATIENT
  Age: 62 Year
  Sex: Male

DRUGS (6)
  1. SEROQUEL [Suspect]
     Active Substance: QUETIAPINE FUMARATE
     Route: 048
     Dates: start: 2016
  2. SEROQUEL [Suspect]
     Active Substance: QUETIAPINE FUMARATE
     Route: 048
     Dates: start: 2016
  3. LITHIUM SULFATE [Suspect]
     Active Substance: LITHIUM SULFATE
     Route: 048
     Dates: start: 2020, end: 20210510
  4. LITHIUM SULFATE [Suspect]
     Active Substance: LITHIUM SULFATE
     Route: 048
     Dates: end: 2020
  5. LITHIUM SULFATE [Suspect]
     Active Substance: LITHIUM SULFATE
     Route: 048
     Dates: start: 20210510
  6. MELATONIN [Concomitant]
     Active Substance: MELATONIN
     Route: 065

REACTIONS (1)
  - Postural tremor [Recovered/Resolved]

NARRATIVE: CASE EVENT DATE: 20180101
